FAERS Safety Report 6494110-5 (Version None)
Quarter: 2009Q4

REPORT INFORMATION
  Report Type: 
  Country: None (occurrence: None)
  Receive Date: 20091214
  Receipt Date: 20090310
  Transmission Date: 20100525
  Serious: Yes (Other)
  Sender: FDA-Public Use
  Company Number: US-BRISTOL-MYERS SQUIBB COMPANY-14460364

PATIENT
  Age: 50 Year
  Sex: Male

DRUGS (2)
  1. ABILIFY [Suspect]
     Indication: BIPOLAR DISORDER
     Route: 048
     Dates: start: 20071107, end: 20081217
  2. DILANTIN [Concomitant]

REACTIONS (3)
  - CONVULSION [None]
  - ERECTILE DYSFUNCTION [None]
  - URINARY INCONTINENCE [None]
